FAERS Safety Report 20148532 (Version 1)
Quarter: 2021Q4

REPORT INFORMATION
  Report Type: Report from Study
  Country: JP (occurrence: JP)
  Receive Date: 20211205
  Receipt Date: 20211205
  Transmission Date: 20220303
  Serious: Yes (Hospitalization)
  Sender: FDA-Public Use
  Company Number: JP-BAUSCH-BL-2021-039919

PATIENT
  Age: 52 Year
  Sex: Female
  Weight: 48.1 kg

DRUGS (21)
  1. TARGRETIN [Suspect]
     Active Substance: BEXAROTENE
     Indication: Cutaneous T-cell lymphoma
     Route: 048
     Dates: start: 20170420, end: 20170604
  2. TARGRETIN [Suspect]
     Active Substance: BEXAROTENE
     Route: 048
     Dates: start: 20170605, end: 20211011
  3. HIRUDOID SOFT OINTMENT [Concomitant]
     Indication: Product used for unknown indication
     Dosage: APPROPRIATE DOS? BEFORE TARGRETIN ADMINISTRATION
  4. PREDONINE [Concomitant]
     Active Substance: PREDNISOLONE
     Indication: Product used for unknown indication
  5. RABEPRAZOLE SODIUM [Concomitant]
     Active Substance: RABEPRAZOLE SODIUM
     Indication: Product used for unknown indication
     Route: 048
  6. SULFAMETHOXAZOLE\TRIMETHOPRIM [Concomitant]
     Active Substance: SULFAMETHOXAZOLE\TRIMETHOPRIM
     Indication: Product used for unknown indication
     Dosage: BEFORE TARGRETIN ADMINISTRATION
  7. CALFINA [Concomitant]
     Indication: Product used for unknown indication
     Dosage: BEFORE TARGRETIN ADMINISTRATION
  8. BISACODYL [Concomitant]
     Active Substance: BISACODYL
     Indication: Product used for unknown indication
     Dosage: BEFORE TARGRETIN ADMINISTRATION
  9. LEVOTHYROXINE [Concomitant]
     Active Substance: LEVOTHYROXINE
     Indication: Product used for unknown indication
     Dosage: BEFORE TARGRETIN ADMINISTRATION
     Dates: start: 20170419
  10. LEVOTHYROXINE [Concomitant]
     Active Substance: LEVOTHYROXINE
     Dates: start: 20170420, end: 20170524
  11. LEVOTHYROXINE [Concomitant]
     Active Substance: LEVOTHYROXINE
     Dates: start: 20170525, end: 20170627
  12. LEVOTHYROXINE [Concomitant]
     Active Substance: LEVOTHYROXINE
     Dates: start: 20170628, end: 20170725
  13. LEVOTHYROXINE [Concomitant]
     Active Substance: LEVOTHYROXINE
     Dates: start: 20170726, end: 20170920
  14. LEVOTHYROXINE [Concomitant]
     Active Substance: LEVOTHYROXINE
     Dates: start: 20170921, end: 20171213
  15. BETAMETHASONE BUTYRATE PROPIONATE [Concomitant]
     Active Substance: BETAMETHASONE BUTYRATE PROPIONATE
     Indication: Product used for unknown indication
     Dosage: APPROPRIATE DOSE?BEFORE TARGRETIN ADMINISTRATION - 28/MAR/2018
  16. AMITIZA [Concomitant]
     Active Substance: LUBIPROSTONE
     Indication: Product used for unknown indication
     Dates: start: 20170614, end: 20170726
  17. XYZAL [Concomitant]
     Active Substance: LEVOCETIRIZINE DIHYDROCHLORIDE
     Indication: Product used for unknown indication
     Dates: start: 20171129, end: 20180314
  18. XYZAL [Concomitant]
     Active Substance: LEVOCETIRIZINE DIHYDROCHLORIDE
     Dates: start: 20180315
  19. LOCOID OINTMENT [Concomitant]
     Indication: Product used for unknown indication
     Dosage: APPROPRIATE DOSE
     Dates: start: 20180314
  20. CLOBETASOL PROPIONATE [Concomitant]
     Active Substance: CLOBETASOL PROPIONATE
     Indication: Product used for unknown indication
     Dosage: APPROPRIATE DOSE
     Dates: start: 20180328
  21. WHITE PETROLATUM SAWACILLIN(AMOXICILLIN TRIHYDRATE) [Concomitant]
     Indication: Product used for unknown indication
     Dates: start: 20180411, end: 20180413

REACTIONS (3)
  - Blood immunoglobulin G decreased [Recovered/Resolved]
  - Hypertriglyceridaemia [Recovered/Resolved]
  - Oedema peripheral [Recovered/Resolved]

NARRATIVE: CASE EVENT DATE: 20211011
